FAERS Safety Report 9224553 (Version 1)
Quarter: 2013Q1

REPORT INFORMATION
  Report Type: Spontaneous
  Country: US (occurrence: None)
  Receive Date: 20120917
  Receipt Date: 20120917
  Transmission Date: 20140127
  Serious: Yes (Other)
  Sender: FDA-Public Use
  Company Number: 1000036962

PATIENT
  Age: 58 Year
  Sex: Male
  Weight: 99.7 kg

DRUGS (1)
  1. CITALOPRAM [Suspect]

REACTIONS (1)
  - Angina pectoris [None]
